FAERS Safety Report 4354618-5 (Version None)
Quarter: 2004Q2

REPORT INFORMATION
  Report Type: 
  Country: None (occurrence: None)
  Receive Date: 20040506
  Receipt Date: 20040506
  Transmission Date: 20050107
  Serious: Yes (Life-Threatening)
  Sender: FDA-Public Use
  Company Number: None

PATIENT
  Sex: Female

DRUGS (3)
  1. CISPLATIN CHEMO [Suspect]
     Dosage: CYCLE # 3 DC'D
  2. RADIATION THERAPY [Suspect]
     Indication: CERVIX CARCINOMA
     Dosage: DAILY
  3. CELEBREX [Concomitant]

REACTIONS (6)
  - ANAEMIA [None]
  - BACK PAIN [None]
  - CHILLS [None]
  - LUNG DISORDER [None]
  - NODULE [None]
  - PYREXIA [None]
